FAERS Safety Report 7237974-X (Version None)
Quarter: 2011Q1

REPORT INFORMATION
  Report Type: 
  Country: None (occurrence: None)
  Receive Date: 20110121
  Receipt Date: 20110117
  Transmission Date: 20110831
  Serious: Yes (Death)
  Sender: FDA-Public Use
  Company Number: GXKR2010GB10694

PATIENT
  Sex: Female

DRUGS (9)
  1. MILK THISTLE [Concomitant]
     Dosage: 8582 MG, QD
     Route: 048
  2. GARLIC [Concomitant]
  3. DUCOLEX [Concomitant]
     Dosage: 2.5 MG, PRN
     Route: 048
  4. CRESTOR [Concomitant]
     Dosage: 20 MG, QD
  5. GLUCOSAMINE [Concomitant]
     Dosage: 1500 MG, QD
     Route: 048
  6. PARACETAMOL [Concomitant]
     Indication: OSTEOARTHRITIS
     Dosage: 1 G, TID
     Route: 048
  7. CHONDROITIN [Concomitant]
  8. LARAPAM [Suspect]
     Indication: OSTEOPOROSIS
     Dosage: 100 MG, BID
     Route: 048
  9. FELODIPINE [Concomitant]
     Indication: HYPERTENSION
     Dosage: 10 MG, QD
     Route: 048
     Dates: start: 20060101

REACTIONS (2)
  - CARDIAC ARREST [None]
  - ARRHYTHMIA [None]
